FAERS Safety Report 9267208 (Version 1)
Quarter: 2013Q2

REPORT INFORMATION
  Report Type: Report from Study
  Country: BR (occurrence: BR)
  Receive Date: 20130502
  Receipt Date: 20130502
  Transmission Date: 20140414
  Serious: Yes (Other)
  Sender: FDA-Public Use
  Company Number: PHHY2013BR043003

PATIENT
  Age: 71 Year
  Sex: Female
  Weight: 61 kg

DRUGS (6)
  1. DIOVAN [Suspect]
     Indication: HYPERTENSION
     Dosage: 40 MG (1 IN MORNING AND 1 AT NIGHT), BID
     Route: 048
  2. DIOVAN HCT [Suspect]
     Indication: HYPERTENSION
     Dosage: 2 DF (UNK), DAILY
     Route: 048
  3. GLIFAGE [Concomitant]
     Indication: DIABETES MELLITUS
     Dosage: 500 MG, (1 OR 2 TABLET DAILY)
  4. SPIRONOLACTONE [Concomitant]
     Dosage: 25 MG, (1 OR 2 TABLET DAILY)
  5. ADALAT OROS [Concomitant]
     Dosage: 30 MG, (1 OR 2 TABLET DAILY)
  6. ATENOLOL [Concomitant]
     Dosage: 100 MG, DAILY

REACTIONS (6)
  - Encephalitis [Not Recovered/Not Resolved]
  - Stupor [Not Recovered/Not Resolved]
  - Brain oedema [Not Recovered/Not Resolved]
  - Disorientation [Not Recovered/Not Resolved]
  - Mental impairment [Not Recovered/Not Resolved]
  - Blood cholesterol increased [Unknown]
